FAERS Safety Report 10576339 (Version 1)
Quarter: 2014Q4

REPORT INFORMATION
  Report Type: Spontaneous
  Country: GB (occurrence: GB)
  Receive Date: 20141111
  Receipt Date: 20141111
  Transmission Date: 20150529
  Serious: Yes (Disabling)
  Sender: FDA-Public Use
  Company Number: GB-TEVA-520156ISR

PATIENT
  Age: 59 Year
  Sex: Female

DRUGS (1)
  1. SIMVASTATIN. [Suspect]
     Active Substance: SIMVASTATIN
     Indication: BLOOD CHOLESTEROL INCREASED
     Dosage: DOSE 10 UNIT UNSPECIFIED.
     Route: 048

REACTIONS (14)
  - Feeling abnormal [Unknown]
  - Balance disorder [Unknown]
  - Tenderness [Unknown]
  - Psychiatric symptom [Unknown]
  - Impaired work ability [Unknown]
  - Myalgia [Unknown]
  - Frustration [Unknown]
  - Social problem [Unknown]
  - Fatigue [Unknown]
  - Asthenia [Unknown]
  - Movement disorder [Unknown]
  - Self esteem decreased [Unknown]
  - Memory impairment [Unknown]
  - Hand deformity [Unknown]
